FAERS Safety Report 7875232-0 (Version None)
Quarter: 2011Q4

REPORT INFORMATION
  Report Type: 
  Country: None (occurrence: None)
  Receive Date: 20111031
  Receipt Date: 20111018
  Transmission Date: 20120403
  Serious: Yes (Hospitalization)
  Sender: FDA-Public Use
  Company Number: US-BAYER-2011-027596

PATIENT
  Age: 38 Year
  Sex: Female
  Weight: 100.68 kg

DRUGS (4)
  1. AMPHETAMINE SULFATE [Concomitant]
     Dosage: 60 MG, QD
     Route: 048
  2. BYETTA [Concomitant]
     Dosage: DAILY DOSE 20 MCG/24HR
  3. YAZ [Suspect]
     Dosage: UNK
     Route: 048
     Dates: start: 20080401
  4. TRAZODONE HYDROCHLORIDE [Concomitant]
     Indication: INSOMNIA
     Dosage: UNK UNK, PRN
     Route: 048

REACTIONS (6)
  - GALLBLADDER DISORDER [None]
  - ABDOMINAL PAIN UPPER [None]
  - INJURY [None]
  - CHOLELITHIASIS [None]
  - PAIN [None]
  - CHOLECYSTITIS CHRONIC [None]
